FAERS Safety Report 7166794-X (Version None)
Quarter: 2010Q4

REPORT INFORMATION
  Report Type: 
  Country: None (occurrence: None)
  Receive Date: 20101216
  Receipt Date: 20101208
  Transmission Date: 20110411
  Serious: Yes (Death)
  Sender: FDA-Public Use
  Company Number: DE-ROCHE-748004

PATIENT
  Age: 82 Year
  Sex: Female

DRUGS (1)
  1. XELODA [Suspect]
     Indication: RECTAL CANCER METASTATIC
     Dosage: AS MONOTHERAPY
     Route: 065
     Dates: start: 20100801

REACTIONS (1)
  - BRAIN STEM INFARCTION [None]
